FAERS Safety Report 7099817-7 (Version None)
Quarter: 2010Q4

REPORT INFORMATION
  Report Type: 
  Country: None (occurrence: None)
  Receive Date: 20101112
  Receipt Date: 20101101
  Transmission Date: 20110411
  Serious: Yes (Hospitalization)
  Sender: FDA-Public Use
  Company Number: US-RB-018007-10

PATIENT
  Sex: Male

DRUGS (1)
  1. BUPRNORPHINE/NALOXONE [Suspect]
     Indication: DRUG THERAPY
     Dosage: DOSING INFORMATION UNKNOWN
     Dates: start: 20090723

REACTIONS (3)
  - CELLULITIS [None]
  - PNEUMONIA [None]
  - SUICIDAL IDEATION [None]
